FAERS Safety Report 25883805 (Version 1)
Quarter: 2025Q4

REPORT INFORMATION
  Report Type: Spontaneous
  Country: EU (occurrence: EU)
  Receive Date: 20251006
  Receipt Date: 20251006
  Transmission Date: 20260117
  Serious: Yes (Other)
  Sender: BRISTOL-MYERS SQUIBB COMPANY
  Company Number: None

PATIENT
  Age: 80 Year
  Sex: Female

DRUGS (2)
  1. OPDIVO [Interacting]
     Active Substance: NIVOLUMAB
     Indication: Pleural mesothelioma
     Dates: start: 20240124, end: 20240124
  2. YERVOY [Interacting]
     Active Substance: IPILIMUMAB
     Indication: Pleural mesothelioma
     Dates: start: 20240124, end: 20240124

REACTIONS (2)
  - Myocarditis [Recovered/Resolved]
  - Drug interaction [Recovered/Resolved]

NARRATIVE: CASE EVENT DATE: 20240214
